FAERS Safety Report 4808206-4 (Version None)
Quarter: 2005Q4

REPORT INFORMATION
  Report Type: 
  Country: None (occurrence: None)
  Receive Date: 20051021
  Receipt Date: 20051012
  Transmission Date: 20060501
  Serious: Yes (Hospitalization)
  Sender: FDA-Public Use
  Company Number: 2005142147

PATIENT
  Age: 69 Year
  Sex: Male

DRUGS (6)
  1. NEURONTIN [Suspect]
     Indication: NEURALGIA
     Dosage: 400 MG (400 MG, 1 IN 1 D), ORAL
     Route: 048
     Dates: start: 20050914, end: 20050919
  2. PANADEINE FORTE (CODEINE PHOSPHATE, PARACETAMOL) [Concomitant]
  3. COLOXYL WITH SENNA (DOCUSATE SODIUM, SENNOSIDE A+B) [Concomitant]
  4. ATENOLOL [Concomitant]
  5. PREDNISONE [Concomitant]
  6. IMDUR [Concomitant]

REACTIONS (1)
  - VASCULITIS [None]
